FAERS Safety Report 23566817 (Version 2)
Quarter: 2024Q1

REPORT INFORMATION
  Report Type: Spontaneous
  Country: US (occurrence: US)
  Receive Date: 20240226
  Receipt Date: 20240320
  Transmission Date: 20240410
  Serious: Yes (Other)
  Sender: FDA-Public Use
  Company Number: US-AMNEAL PHARMACEUTICALS-2023-AMRX-01912

PATIENT
  Sex: Female

DRUGS (1)
  1. RYTARY [Suspect]
     Active Substance: CARBIDOPA\LEVODOPA
     Indication: Product used for unknown indication
     Dosage: 2 CAPSULES, QID (23.75/95 MG)
     Route: 048

REACTIONS (5)
  - Brain injury [Unknown]
  - Urinary tract infection [Not Recovered/Not Resolved]
  - Memory impairment [Unknown]
  - Confusional state [Not Recovered/Not Resolved]
  - Product use issue [Unknown]
